FAERS Safety Report 5788479-4 (Version None)
Quarter: 2008Q2

REPORT INFORMATION
  Report Type: 
  Country: None (occurrence: None)
  Receive Date: 20080625
  Receipt Date: 20080625
  Transmission Date: 20081010
  Serious: Yes (Other)
  Sender: FDA-Public Use
  Company Number: None

PATIENT
  Age: 42 Year
  Sex: Female
  Weight: 79.3795 kg

DRUGS (1)
  1. SUBOXONE [Suspect]
     Indication: DRUG DEPENDENCE
     Dosage: 8MG ONCE DAY SL
     Route: 060
     Dates: start: 20070501, end: 20080622

REACTIONS (3)
  - DENTAL CARIES [None]
  - MEDICATION ERROR [None]
  - TOOTH ABSCESS [None]
